FAERS Safety Report 23385636 (Version 2)
Quarter: 2024Q4

REPORT INFORMATION
  Report Type: Report from Study
  Country: CA (occurrence: CA)
  Receive Date: 20240110
  Receipt Date: 20241219
  Transmission Date: 20250115
  Serious: Yes (Hospitalization)
  Sender: BIOGEN
  Company Number: CA-BIOGEN-2024BI01244186

PATIENT
  Age: 49 Year
  Sex: Male

DRUGS (2)
  1. TYSABRI [Suspect]
     Active Substance: NATALIZUMAB
     Indication: Multiple sclerosis
     Route: 050
     Dates: start: 20200512
  2. TYSABRI [Suspect]
     Active Substance: NATALIZUMAB
     Route: 050
     Dates: start: 20200512

REACTIONS (1)
  - Atrial fibrillation [Recovered/Resolved]

NARRATIVE: CASE EVENT DATE: 20231206
